FAERS Safety Report 12868818 (Version 1)
Quarter: 2016Q4

REPORT INFORMATION
  Report Type: Spontaneous
  Country: US (occurrence: US)
  Receive Date: 20161021
  Receipt Date: 20161021
  Transmission Date: 20170207
  Serious: Yes (Other)
  Sender: FDA-Public Use
  Company Number: US-SHIRE-US201614903

PATIENT
  Age: 40 Year
  Sex: Male
  Weight: 99.77 kg

DRUGS (1)
  1. LIALDA [Suspect]
     Active Substance: MESALAMINE
     Indication: COLITIS ULCERATIVE
     Dosage: 1.2 G, 1X/DAY:QD
     Route: 048
     Dates: start: 2016

REACTIONS (3)
  - Blood pressure increased [Not Recovered/Not Resolved]
  - Left atrial enlargement [Not Recovered/Not Resolved]
  - Heart rate increased [Not Recovered/Not Resolved]

NARRATIVE: CASE EVENT DATE: 20161014
